FAERS Safety Report 8479769-5 (Version None)
Quarter: 2012Q2

REPORT INFORMATION
  Report Type: 
  Country: None (occurrence: None)
  Receive Date: 20120629
  Receipt Date: 20120618
  Transmission Date: 20120825
  Serious: Yes (Life-Threatening, Hospitalization)
  Sender: FDA-Public Use
  Company Number: FR-MYLANLABS-2012S1012270

PATIENT
  Age: 59 Year
  Sex: Male

DRUGS (5)
  1. METFORMIN HCL [Suspect]
     Indication: DIABETES MELLITUS
  2. ENALAPRIL MALEATE [Suspect]
     Dates: start: 20070101, end: 20120316
  3. SIMVASTATIN [Concomitant]
     Route: 048
  4. LEVEMIR [Concomitant]
     Route: 058
  5. CEFUROXIME [Suspect]
     Indication: VIRAL INFECTION
     Dates: start: 20120302, end: 20120311

REACTIONS (1)
  - RENAL FAILURE ACUTE [None]
